FAERS Safety Report 25497392 (Version 1)
Quarter: 2025Q3

REPORT INFORMATION
  Report Type: Spontaneous
  Country: US (occurrence: US)
  Receive Date: 20250701
  Receipt Date: 20250701
  Transmission Date: 20251020
  Serious: No
  Sender: RANBAXY
  Company Number: US-MIMS-SUN-2025-USA-53083

PATIENT
  Sex: Female

DRUGS (1)
  1. IVERMECTIN [Suspect]
     Active Substance: IVERMECTIN
     Indication: Lice infestation
     Route: 065

REACTIONS (1)
  - Drug ineffective [Unknown]
